FAERS Safety Report 6100837-7 (Version None)
Quarter: 2009Q1

REPORT INFORMATION
  Report Type: 
  Country: None (occurrence: None)
  Receive Date: 20090304
  Receipt Date: 20090218
  Transmission Date: 20090719
  Serious: Yes (Other)
  Sender: FDA-Public Use
  Company Number: IL-RANBAXY-2009RR-21978

PATIENT
  Age: 70 Year
  Sex: Male

DRUGS (8)
  1. ATENOLOL [Suspect]
  2. PROPRANOLOL [Suspect]
  3. ASPIRIN [Suspect]
  4. FELODIPINE [Suspect]
  5. ATENOLOL [Concomitant]
  6. PROPRANOLOL [Concomitant]
  7. ASPIRIN [Concomitant]
  8. FELODIPINE [Concomitant]

REACTIONS (1)
  - DERMATITIS PSORIASIFORM [None]
